FAERS Safety Report 5463796-6 (Version None)
Quarter: 2007Q3

REPORT INFORMATION
  Report Type: 
  Country: None (occurrence: None)
  Receive Date: 20070919
  Receipt Date: 20070919
  Transmission Date: 20080115
  Serious: Yes (Life-Threatening, Hospitalization, Disabling)
  Sender: FDA-Public Use
  Company Number: TPA2007A01790

PATIENT
  Age: 59 Year
  Sex: Male
  Weight: 113.8529 kg

DRUGS (13)
  1. ACTOS [Suspect]
     Indication: TYPE 2 DIABETES MELLITUS
     Dosage: 45 MG, 1 IN 1 D, PER ORAL
     Route: 048
     Dates: start: 20000501
  2. BYETTA (DRUG USED IN DIABETES) (TABLETS) [Concomitant]
  3. COREG [Concomitant]
  4. LIPITOR [Concomitant]
  5. FUROSEMIDE [Concomitant]
  6. PLAVIX [Concomitant]
  7. OMEPRAZOLE [Concomitant]
  8. ZETIA [Concomitant]
  9. WELLBUTRIN [Concomitant]
  10. AMITRIPTYLINE HCL [Concomitant]
  11. TYLENOL (PARACETAMOL) (TABLETS) [Concomitant]
  12. BEXTRA [Concomitant]
  13. GLYBURIDE [Concomitant]

REACTIONS (4)
  - CARDIAC FAILURE CONGESTIVE [None]
  - CARDIOMYOPATHY [None]
  - MYOCARDIAL INFARCTION [None]
  - VENTRICULAR TACHYCARDIA [None]
